FAERS Safety Report 20157582 (Version 1)
Quarter: 2021Q4

REPORT INFORMATION
  Report Type: Report from Study
  Country: US (occurrence: US)
  Receive Date: 20211207
  Receipt Date: 20211207
  Transmission Date: 20220304
  Serious: Yes (Other)
  Sender: FDA-Public Use
  Company Number: US-SUNOVION-2021SUN004548

PATIENT
  Age: 72 Year
  Sex: Female

DRUGS (1)
  1. KYNMOBI [Suspect]
     Active Substance: APOMORPHINE HYDROCHLORIDE
     Indication: Parkinson^s disease
     Dosage: 10 MG
     Route: 060
     Dates: start: 20211201

REACTIONS (6)
  - Presyncope [Unknown]
  - Dysstasia [Unknown]
  - Heart rate decreased [Unknown]
  - Somnolence [Unknown]
  - Nausea [Unknown]
  - Fatigue [Unknown]

NARRATIVE: CASE EVENT DATE: 20211201
